FAERS Safety Report 4844780-X (Version None)
Quarter: 2005Q4

REPORT INFORMATION
  Report Type: 
  Country: None (occurrence: None)
  Receive Date: 20051205
  Receipt Date: 20051128
  Transmission Date: 20060501
  Serious: Yes (Hospitalization, Other)
  Sender: FDA-Public Use
  Company Number: US-BRISTOL-MYERS SQUIBB COMPANY-13197496

PATIENT
  Age: 60 Year
  Sex: Female

DRUGS (15)
  1. ERBITUX [Suspect]
     Indication: BREAST CANCER METASTATIC
     Dosage: THERAPY INITIATED 20-SEPT-2005.
     Route: 042
     Dates: start: 20051121, end: 20051121
  2. CARBOPLATIN [Suspect]
     Indication: BREAST CANCER METASTATIC
     Dosage: THERAPY INITIATED 20-SEPT-2005
     Route: 042
     Dates: start: 20051121, end: 20051121
  3. IRINOTECAN HCL [Suspect]
     Indication: BREAST CANCER METASTATIC
     Dosage: THERAPY INITIATED 20-SEPT-2005.
     Route: 042
     Dates: start: 20051121, end: 20051121
  4. PROPANOLOL HYDROCHLORIDE [Concomitant]
     Indication: BLOOD PRESSURE
     Route: 048
     Dates: start: 19850101
  5. XANAX [Concomitant]
     Indication: ANXIETY
     Route: 048
     Dates: start: 20000101
  6. HYDROCHLOROTHIAZIDE [Concomitant]
     Indication: BLOOD PRESSURE
     Dosage: 1/2 PILL EVERY DAY
     Route: 048
     Dates: start: 20050301
  7. COMPAZINE [Concomitant]
     Indication: NAUSEA
     Route: 048
     Dates: start: 20050920
  8. IMODIUM [Concomitant]
     Indication: DIARRHOEA
     Route: 048
     Dates: start: 20050921
  9. ATIVAN [Concomitant]
     Indication: NAUSEA
     Dosage: 0.5-1.0 MG (1-2 TABS) AS NEEDED EVERY 3-4 HOURS.
     Route: 048
     Dates: start: 20050925
  10. LOMOTIL [Concomitant]
     Indication: DIARRHOEA
     Route: 048
     Dates: start: 20050929
  11. OPIUM TINCTURE [Concomitant]
     Indication: DIARRHOEA
     Dosage: FOUR TABLETS -FOUR TIMES A DAY, EVERY DAY AS NECESSARY.
     Route: 048
  12. POTASSIUM CHLORIDE [Concomitant]
     Indication: MINERAL SUPPLEMENTATION
     Route: 048
     Dates: start: 20051028
  13. COUMADIN [Concomitant]
     Indication: PULMONARY EMBOLISM
     Dosage: CHANGING DOSE.
     Route: 048
     Dates: start: 20051102
  14. TETRACYCLINE [Concomitant]
     Indication: RASH
     Dosage: FOR 30 DAYS
     Route: 048
     Dates: start: 20051114
  15. LOVENOX [Concomitant]
     Indication: PULMONARY EMBOLISM
     Route: 058
     Dates: start: 20051102, end: 20051107

REACTIONS (4)
  - HYPOCALCAEMIA [None]
  - HYPOMAGNESAEMIA [None]
  - PANCYTOPENIA [None]
  - RASH [None]
